FAERS Safety Report 6780234 (Version 2)
Quarter: 2014Q3

REPORT INFORMATION
  Report Type: Spontaneous
  Country: US (occurrence: None)
  Receive Date: 20080922
  Receipt Date: 20140822
  Transmission Date: 20150326
  Serious: Yes (Other)
  Sender: FDA-Public Use
  Company Number: 2008S1009151

PATIENT
  Age: 65 Year
  Sex: Female
  Weight: 82 kg

DRUGS (11)
  1. INDERAL [Concomitant]
     Active Substance: PROPRANOLOL HYDROCHLORIDE
  2. BEXTRA (PARECOXIB SODIUM) [Concomitant]
     Active Substance: PARECOXIB SODIUM
  3. PHOSPHO-SODA [Suspect]
     Active Substance: SODIUM PHOSPHATE, DIBASIC\SODIUM PHOSPHATE, MONOBASIC
     Indication: COLONOSCOPY
     Dosage: PO
     Route: 048
     Dates: start: 20031016, end: 20031016
  4. REQUIP [Concomitant]
     Active Substance: ROPINIROLE HYDROCHLORIDE
  5. ASPIRIN (ACETYLSALICYLIC ACID) [Concomitant]
     Active Substance: ASPIRIN
  6. PAXIL [Concomitant]
     Active Substance: PAROXETINE HYDROCHLORIDE
  7. HYDROCHLOROTHIAZIDE. [Concomitant]
     Active Substance: HYDROCHLOROTHIAZIDE
  8. ZETIA [Concomitant]
     Active Substance: EZETIMIBE
  9. CALCIUM [Concomitant]
     Active Substance: CALCIUM
  10. FLEXERIL [Concomitant]
     Active Substance: CYCLOBENZAPRINE HYDROCHLORIDE
  11. ZOCOR [Concomitant]
     Active Substance: SIMVASTATIN

REACTIONS (18)
  - Arthralgia [None]
  - Nephrosclerosis [None]
  - Obesity [None]
  - Renal failure acute [None]
  - Anaemia [None]
  - Urinary incontinence [None]
  - Dyspnoea exertional [None]
  - Hypertension [None]
  - Dyslipidaemia [None]
  - Renal failure chronic [None]
  - Blood parathyroid hormone increased [None]
  - Back pain [None]
  - Depression [None]
  - Constipation [None]
  - Renal atrophy [None]
  - Urinary tract infection [None]
  - Nocturia [None]
  - Oedema peripheral [None]

NARRATIVE: CASE EVENT DATE: 2003
